FAERS Safety Report 22335802 (Version 1)
Quarter: 2023Q2

REPORT INFORMATION
  Report Type: Report from Study
  Country: US (occurrence: None)
  Receive Date: 20230518
  Receipt Date: 20230518
  Transmission Date: 20230721
  Serious: Yes (Life-Threatening, Other)
  Sender: FDA-Public Use
  Company Number: US-ROCHE-3349644

PATIENT

DRUGS (10)
  1. RITUXIMAB [Suspect]
     Active Substance: RITUXIMAB
     Indication: Burkitt^s lymphoma
     Dosage: 09/OCT/2016, 26/OCT/2016, 17/NOV/2016, 09/DEC/2016, 13/JAN/2017, 07/FEB/2017
     Route: 041
     Dates: start: 20161004, end: 20161004
  2. CYCLOPHOSPHAMIDE [Suspect]
     Active Substance: CYCLOPHOSPHAMIDE
     Indication: Burkitt^s lymphoma
     Dosage: 30/OCT/2016, 22/NOV/2016, 14/DEC/2016, 18/JAN/2017, 12/FEB/2017
     Route: 065
     Dates: start: 20161009, end: 20161009
  3. METHOTREXATE [Suspect]
     Active Substance: METHOTREXATE
     Indication: Burkitt^s lymphoma
     Dosage: MOST RECENT DOSE: 06/OCT/2016, 19/OCT/2016, 21/OCT/2016, 25/OCT/2016, 01/NOV/2016, 28/OCT/2016, 03/N
     Route: 065
     Dates: start: 20161003, end: 20161003
  4. VINCRISTINE [Suspect]
     Active Substance: VINCRISTINE
     Indication: Burkitt^s lymphoma
     Dosage: RECENT DOSE: 26/OCT/2016, 17/NOV/2016, 10/DEC/2016. 14/JAN/2017, 08/FEB/2017
     Route: 065
     Dates: start: 20161004, end: 20161004
  5. PREDNISONE [Suspect]
     Active Substance: PREDNISONE
     Indication: Burkitt^s lymphoma
     Dosage: 26/OCT/2016, 17/NOV/2016, 10/DEC/2016, 14/JAN/2017, 8/FEB/2017
     Route: 065
     Dates: start: 20161008, end: 20161008
  6. FILGRASTIM [Suspect]
     Active Substance: FILGRASTIM
     Indication: Burkitt^s lymphoma
     Dosage: RECENT DOSE: 26/OCT/2016
     Route: 065
     Dates: start: 20161010, end: 20161018
  7. ETOPOSIDE [Suspect]
     Active Substance: ETOPOSIDE
     Indication: Burkitt^s lymphoma
     Dosage: RECENT DOSE: 26/OCT/2016, 17/NOV/2016, 10/DEC/2016, 14/JAN/2017, 08/FEB/2017
     Route: 065
     Dates: start: 20161004, end: 20161008
  8. DOXORUBICIN [Suspect]
     Active Substance: DOXORUBICIN
     Indication: Burkitt^s lymphoma
     Dosage: 26/OCT/2016, 17/NOV/2016, 10/DEC/2016, 14/JAN/2017, 08/FEB/2017
     Route: 065
     Dates: start: 20161004, end: 20161008
  9. CYTARABINE [Suspect]
     Active Substance: CYTARABINE
     Indication: Burkitt^s lymphoma
     Dosage: 01/DEC/2016, 22/NOV/2016, 18/NOV/2016, 12/DEC/2016, 16/JAN/2017, 13/FEB/2017
     Route: 065
     Dates: start: 20161111, end: 20161111
  10. PEGFILGRASTIM [Suspect]
     Active Substance: PEGFILGRASTIM
     Indication: Burkitt^s lymphoma
     Dosage: 23/NOV/2016, 15/DEC/2016, 17/JAN/2017, 14/FEB/2017
     Route: 065
     Dates: start: 20161102, end: 20161102

REACTIONS (16)
  - Myelodysplastic syndrome [Not Recovered/Not Resolved]
  - Cellulitis [Recovered/Resolved]
  - Hyponatraemia [Recovered/Resolved]
  - Colitis [Recovered/Resolved]
  - Febrile neutropenia [Recovered/Resolved]
  - Platelet count decreased [Recovered/Resolved]
  - Vascular access complication [Not Recovered/Not Resolved]
  - Stomatitis [Recovered/Resolved]
  - Lymphocyte count decreased [Recovered/Resolved]
  - Anaemia [Recovered/Resolved]
  - White blood cell count decreased [Recovered/Resolved]
  - Neutrophil count decreased [Recovered/Resolved]
  - Hypophosphataemia [Recovered/Resolved]
  - Hypokalaemia [Recovered/Resolved]
  - Hyperglycaemia [Recovered/Resolved]
  - Odynophagia [Recovered/Resolved]

NARRATIVE: CASE EVENT DATE: 20161011
